FAERS Safety Report 22194627 (Version 1)
Quarter: 2023Q2

REPORT INFORMATION
  Report Type: Spontaneous
  Country: US (occurrence: US)
  Receive Date: 20230411
  Receipt Date: 20230411
  Transmission Date: 20230721
  Serious: No
  Sender: FDA-Public Use
  Company Number: US-SA-SAC20230405001464

PATIENT
  Age: 43 Year
  Sex: Female

DRUGS (16)
  1. DUPIXENT [Suspect]
     Active Substance: DUPILUMAB
     Indication: Asthma
     Dosage: 300 MG, QOW
     Route: 058
     Dates: start: 20200909
  2. ADVAIR HFA [Concomitant]
     Active Substance: FLUTICASONE PROPIONATE\SALMETEROL XINAFOATE
  3. BACLOFEN [Concomitant]
     Active Substance: BACLOFEN
  4. EPINEPHRINE [Concomitant]
     Active Substance: EPINEPHRINE
  5. FLUTICASONE [Concomitant]
     Active Substance: FLUTICASONE
  6. ALBUTEROL\IPRATROPIUM [Concomitant]
     Active Substance: ALBUTEROL\IPRATROPIUM
  7. LORATADINE [Concomitant]
     Active Substance: LORATADINE
  8. MELOXICAM [Concomitant]
     Active Substance: MELOXICAM
  9. MONTELUKAST [Concomitant]
     Active Substance: MONTELUKAST SODIUM
  10. NAPROXEN [Concomitant]
     Active Substance: NAPROXEN
  11. OMEPRAZOLE [Concomitant]
     Active Substance: OMEPRAZOLE
  12. PEG 3350 [Concomitant]
     Active Substance: POLYETHYLENE GLYCOL 3350
  13. PREDNISONE [Concomitant]
     Active Substance: PREDNISONE
  14. SPIRIVA [Concomitant]
     Active Substance: TIOTROPIUM BROMIDE MONOHYDRATE
  15. TRELEGY ELLIPTA [Concomitant]
     Active Substance: FLUTICASONE FUROATE\UMECLIDINIUM BROMIDE\VILANTEROL TRIFENATATE
  16. VENTOLIN HFA [Concomitant]
     Active Substance: ALBUTEROL SULFATE

REACTIONS (2)
  - Erythema [Recovered/Resolved]
  - Dry eye [Recovered/Resolved]
